FAERS Safety Report 8259340-0 (Version None)
Quarter: 2012Q2

REPORT INFORMATION
  Report Type: 
  Country: None (occurrence: None)
  Receive Date: 20120404
  Receipt Date: 20120327
  Transmission Date: 20120825
  Serious: Yes (Other)
  Sender: FDA-Public Use
  Company Number: US-ALEXION-A201200586

PATIENT
  Sex: Female

DRUGS (2)
  1. MENINGOCOCCAL VACCINE [Suspect]
     Indication: IMMUNISATION
     Dosage: UNK
     Dates: start: 20120313, end: 20120313
  2. SOLIRIS [Suspect]
     Dosage: 900 MG, UNK
     Route: 042

REACTIONS (4)
  - PARAESTHESIA [None]
  - DYSPNOEA [None]
  - CHEST DISCOMFORT [None]
  - INFUSION RELATED REACTION [None]
